FAERS Safety Report 9018705 (Version 2)
Quarter: 2013Q1

REPORT INFORMATION
  Report Type: Spontaneous
  Country: BR (occurrence: BR)
  Receive Date: 20130118
  Receipt Date: 20130306
  Transmission Date: 20140127
  Serious: Yes (Hospitalization)
  Sender: FDA-Public Use
  Company Number: BR-NOVOPROD-368901

PATIENT
  Sex: Male

DRUGS (1)
  1. NOVOMIX 30 FLEXPEN [Suspect]
     Indication: PRODUCT USED FOR UNKNOWN INDICATION
     Dosage: 66 U, QD
     Route: 058

REACTIONS (3)
  - Faecaloma [Recovered/Resolved]
  - Urinary incontinence [Recovered/Resolved]
  - Hypoglycaemia [Recovered/Resolved]
